FAERS Safety Report 8950262 (Version 1)
Quarter: 2012Q4

REPORT INFORMATION
  Report Type: 
  Country: MX (occurrence: MX)
  Receive Date: 20121205
  Receipt Date: 20121205
  Transmission Date: 20130627
  Serious: Yes (Other)
  Sender: FDA-Public Use
  Company Number: PHHY2012MX109347

PATIENT
  Age: 10 Year
  Sex: Male

DRUGS (3)
  1. TRILEPTAL [Suspect]
     Indication: CONVULSION
     Dosage: 2 DF, daily
     Route: 048
  2. OXCARBAZEPINE [Concomitant]
     Indication: CONVULSION
     Dosage: 2 DF, daily
     Route: 048
     Dates: start: 2011
  3. ATEMPERATOR//VALPROIC ACID [Concomitant]
     Indication: CONVULSION
     Dosage: 4 DF, daily
     Route: 048
     Dates: start: 2003

REACTIONS (3)
  - Fall [Recovered/Resolved]
  - Feeling abnormal [Recovered/Resolved]
  - Aphasia [Recovered/Resolved]
